FAERS Safety Report 14191508 (Version 1)
Quarter: 2017Q4

REPORT INFORMATION
  Report Type: Spontaneous
  Country: US (occurrence: US)
  Receive Date: 20171115
  Receipt Date: 20171115
  Transmission Date: 20180321
  Serious: No
  Sender: FDA-Public Use
  Company Number: US-PERRIGO-17US026262

PATIENT
  Sex: Female

DRUGS (1)
  1. CLOBETASOL PROPIONATE. [Suspect]
     Active Substance: CLOBETASOL PROPIONATE
     Indication: SKIN ULCER
     Dosage: UNKNOWN AMOUNT FOR 5 TO 6 DAYS
     Route: 061
     Dates: start: 201708, end: 201708

REACTIONS (3)
  - Skin discolouration [Unknown]
  - Wound haemorrhage [Unknown]
  - Drug administered at inappropriate site [Unknown]

NARRATIVE: CASE EVENT DATE: 201708
